FAERS Safety Report 5746791-9 (Version None)
Quarter: 2008Q2

REPORT INFORMATION
  Report Type: 
  Country: None (occurrence: None)
  Receive Date: 20080522
  Receipt Date: 20080513
  Transmission Date: 20081010
  Serious: Yes (Hospitalization)
  Sender: FDA-Public Use
  Company Number: SE-PFIZER INC-2008041247

PATIENT
  Sex: Female

DRUGS (11)
  1. SALAZOPYRIN [Suspect]
     Indication: PSORIATIC ARTHROPATHY
     Route: 048
     Dates: start: 20070801, end: 20080327
  2. SYMBICORT [Concomitant]
     Route: 055
  3. OMEPRAZOLE [Concomitant]
  4. SERTRALINE [Concomitant]
  5. PROPAVAN [Concomitant]
     Route: 048
  6. HALDOL [Concomitant]
     Route: 048
  7. NITROGLYCERIN [Concomitant]
     Route: 048
  8. METOPROLOL TARTRATE [Concomitant]
     Route: 048
  9. ASPIRIN [Concomitant]
     Route: 048
  10. ACETYLCYSTEINE [Concomitant]
     Route: 048
  11. MONTELUKAST SODIUM [Concomitant]
     Route: 048

REACTIONS (1)
  - PANCYTOPENIA [None]
